FAERS Safety Report 21133315 (Version 1)
Quarter: 2022Q3

REPORT INFORMATION
  Report Type: Spontaneous
  Country: US (occurrence: US)
  Receive Date: 20220726
  Receipt Date: 20220726
  Transmission Date: 20221026
  Serious: Yes (Other)
  Sender: FDA-Public Use
  Company Number: US-CMP PHARMA-2022CMP00016

PATIENT
  Age: 34 Year
  Sex: Male

DRUGS (2)
  1. TRIAMCINOLONE [Suspect]
     Active Substance: TRIAMCINOLONE
     Indication: Functional endoscopic sinus surgery
     Dosage: UNK
     Route: 045
  2. UNSPECIFIED INGREDIENT [Concomitant]
     Active Substance: UNSPECIFIED INGREDIENT
     Indication: Functional endoscopic sinus surgery
     Route: 065

REACTIONS (2)
  - Blindness [Not Recovered/Not Resolved]
  - Retinal artery occlusion [Unknown]
